FAERS Safety Report 7074415-X (Version None)
Quarter: 2010Q4

REPORT INFORMATION
  Report Type: 
  Country: None (occurrence: None)
  Receive Date: 20101029
  Receipt Date: 20101022
  Transmission Date: 20110411
  Serious: Yes (Hospitalization)
  Sender: FDA-Public Use
  Company Number: GXKR2010PL12009

PATIENT
  Age: 27 Year
  Sex: Male

DRUGS (6)
  1. FUROSEMIDE (NGX) [Suspect]
     Dosage: 2-30 TABLETS EVERY DAY FOR SEVERAL WEEKS
     Route: 065
  2. FUROSEMIDE (NGX) [Suspect]
     Dosage: 2 DF, QD
     Route: 065
  3. IBUPROFEN [Concomitant]
  4. OXANDROLONE [Concomitant]
  5. METANDIENONE [Concomitant]
  6. HUMAN GROWTH HORMONE, RECOMBINANT [Concomitant]

REACTIONS (9)
  - AZOTAEMIA [None]
  - DEHYDRATION [None]
  - DRUG ABUSE [None]
  - HYPOCHLORAEMIA [None]
  - HYPOKALAEMIA [None]
  - METABOLIC ALKALOSIS [None]
  - PSEUDO-BARTTER SYNDROME [None]
  - RENAL FAILURE ACUTE [None]
  - VOMITING [None]
